FAERS Safety Report 4366605-1 (Version None)
Quarter: 2004Q2

REPORT INFORMATION
  Report Type: 
  Country: None (occurrence: None)
  Receive Date: 20040524
  Receipt Date: 20040430
  Transmission Date: 20050107
  Serious: Yes (Hospitalization)
  Sender: FDA-Public Use
  Company Number: 2004-BP-03536NB

PATIENT
  Age: 41 Year
  Sex: Male

DRUGS (15)
  1. ALESION (EPINASTINE HYDROCHLORIDE) [Suspect]
     Dosage: 2 ANZ, PO
     Route: 048
  2. STOCRIN (EFAVIRENZ) [Suspect]
     Indication: HIV INFECTION
     Dosage: 800 MG, PO
     Route: 048
     Dates: start: 20030501
  3. ZERIT [Suspect]
     Indication: HIV INFECTION
     Dosage: 80 MG, PO
     Route: 048
  4. PRAVASTATIN [Suspect]
     Dosage: 20 MG, PO
     Route: 048
  5. TRAZODONE HCL [Suspect]
     Dosage: PO
     Route: 048
  6. EPIVIR [Suspect]
     Indication: HIV INFECTION
     Dosage: 300 MG, PO
     Route: 048
  7. CODEINE PHOSPHATE AND ACETAMINOPHEN [Suspect]
     Dosage: 60 MG, PO
     Route: 048
  8. OMEPRAZOLE [Suspect]
     Dosage: 20 MG, PO
     Route: 048
  9. LOPERAMIDE HCL [Suspect]
     Dosage: 3 ANZ, PO
     Route: 048
  10. FLUNITRAZEPAM (FLUNITRAZEPAM) [Suspect]
     Dosage: 4 MG, PO
     Route: 048
  11. PAROXETINE HCL [Suspect]
     Dosage: 50 MG, PO
     Route: 048
  12. SODIUM ALGINATE [Suspect]
     Dosage: 60 MG, PO
     Route: 048
  13. ETIZOLAM (ETIZOLAM) [Suspect]
     Dosage: 1.5 MG, PO
     Route: 048
  14. DICLOFENAC SODIUM [Suspect]
     Dosage: 2 ANZ, PO
     Route: 048
     Dates: end: 20030601
  15. VITAMIN A [Suspect]
     Dosage: 1 ANZ, PO
     Route: 048

REACTIONS (2)
  - ADVERSE EVENT [None]
  - INCONTINENCE [None]
